FAERS Safety Report 6868837-7 (Version None)
Quarter: 2010Q3

REPORT INFORMATION
  Report Type: 
  Country: None (occurrence: None)
  Receive Date: 20100722
  Receipt Date: 20080617
  Transmission Date: 20110219
  Serious: No
  Sender: FDA-Public Use
  Company Number: US-PFIZER INC-2008051650

PATIENT
  Sex: Male
  Weight: 90.9 kg

DRUGS (2)
  1. CHANTIX [Suspect]
     Indication: SMOKING CESSATION THERAPY
     Route: 048
     Dates: start: 20080501
  2. ANTIDEPRESSANTS [Concomitant]
     Indication: DEPRESSION
     Route: 048

REACTIONS (3)
  - DIZZINESS [None]
  - INSOMNIA [None]
  - NAUSEA [None]
